FAERS Safety Report 25859289 (Version 1)
Quarter: 2025Q3

REPORT INFORMATION
  Report Type: Spontaneous
  Country: BR (occurrence: BR)
  Receive Date: 20250929
  Receipt Date: 20250929
  Transmission Date: 20251021
  Serious: Yes (Other)
  Sender: PFIZER
  Company Number: BR-PFIZER INC-PV202500115841

PATIENT
  Age: 34 Year
  Sex: Male

DRUGS (1)
  1. LITFULO [Suspect]
     Active Substance: RITLECITINIB TOSYLATE
     Indication: Alopecia areata
     Dates: start: 202504, end: 202508

REACTIONS (2)
  - Multiple sclerosis [Unknown]
  - Vision blurred [Unknown]

NARRATIVE: CASE EVENT DATE: 20250801
